FAERS Safety Report 6050014-3 (Version None)
Quarter: 2009Q1

REPORT INFORMATION
  Report Type: 
  Country: None (occurrence: None)
  Receive Date: 20090126
  Receipt Date: 20090115
  Transmission Date: 20090719
  Serious: Yes (Hospitalization)
  Sender: FDA-Public Use
  Company Number: FR-BAXTER-2008BH012777

PATIENT
  Age: 61 Year
  Sex: Male

DRUGS (5)
  1. GAMMAGARD LIQUID [Suspect]
     Indication: IMMUNODEFICIENCY
     Route: 042
     Dates: start: 20081022
  2. VALACYCLOVIR HCL [Concomitant]
  3. ORACILLINE [Concomitant]
  4. CALCIUM FOLINATE [Concomitant]
  5. MOPRAL [Concomitant]

REACTIONS (2)
  - BACK PAIN [None]
  - INFUSION RELATED REACTION [None]
